FAERS Safety Report 11137042 (Version 2)
Quarter: 2015Q3

REPORT INFORMATION
  Report Type: Spontaneous
  Country: JP (occurrence: JP)
  Receive Date: 20150526
  Receipt Date: 20150709
  Transmission Date: 20151125
  Serious: Yes (Other)
  Sender: FDA-Public Use
  Company Number: JP-GLAXOSMITHKLINE INC.-JP2015JPN068609

PATIENT

DRUGS (2)
  1. REVOLADE [Suspect]
     Active Substance: ELTROMBOPAG
     Dosage: UNK
     Route: 048
  2. REVOLADE [Suspect]
     Active Substance: ELTROMBOPAG
     Indication: IMMUNE THROMBOCYTOPENIC PURPURA
     Dosage: UNK
     Route: 048

REACTIONS (8)
  - Blast cell count increased [Unknown]
  - Nucleated red cells [Unknown]
  - Aspiration bone marrow abnormal [Unknown]
  - Hepatomegaly [Unknown]
  - Biopsy bone marrow abnormal [Unknown]
  - Platelet count decreased [Unknown]
  - Myelofibrosis [Recovering/Resolving]
  - Haemoglobin decreased [Unknown]
